FAERS Safety Report 7821176-X (Version None)
Quarter: 2011Q4

REPORT INFORMATION
  Report Type: 
  Country: None (occurrence: None)
  Receive Date: 20111018
  Receipt Date: 20111010
  Transmission Date: 20120403
  Serious: Yes (Death, Hospitalization)
  Sender: FDA-Public Use
  Company Number: PH-BAXTER-2011BH029247

PATIENT
  Age: 63 Year
  Sex: Female

DRUGS (4)
  1. DIANEAL [Suspect]
     Indication: PERITONEAL DIALYSIS
     Route: 033
     Dates: start: 20110901, end: 20110923
  2. DIANEAL [Suspect]
     Route: 033
     Dates: start: 20110513, end: 20110901
  3. DIANEAL [Suspect]
     Route: 033
     Dates: start: 20110513, end: 20110901
  4. DIANEAL [Suspect]
     Route: 033
     Dates: start: 20110901, end: 20110923

REACTIONS (6)
  - MALAISE [None]
  - DEATH [None]
  - ULTRAFILTRATION FAILURE [None]
  - PERITONITIS BACTERIAL [None]
  - PERITONEAL DIALYSIS COMPLICATION [None]
  - ABDOMINAL PAIN [None]
